FAERS Safety Report 9882961 (Version 3)
Quarter: 2014Q1

REPORT INFORMATION
  Report Type: Spontaneous
  Country: US (occurrence: None)
  Receive Date: 20140205
  Receipt Date: 20140318
  Transmission Date: 20141002
  Serious: Yes (Hospitalization, Other)
  Sender: FDA-Public Use
  Company Number: 2014MPI00021

PATIENT
  Age: 20 Year
  Sex: Male
  Weight: 53.3 kg

DRUGS (11)
  1. BRENTUXIMAB VEDOTIN [Suspect]
     Indication: HODGKIN^S DISEASE
     Route: 042
     Dates: start: 20131212, end: 20140127
  2. DOXORUBICIN [Suspect]
     Indication: HODGKIN^S DISEASE
     Route: 042
     Dates: start: 20131212, end: 20140127
  3. VINBLASTINE (VINBLASTINE SULFATE) INJECTION [Suspect]
     Indication: HODGKIN^S DISEASE
     Route: 042
     Dates: start: 20131212, end: 20140127
  4. DACARBAZINE (DACARBAZINE) INJECTION [Suspect]
     Indication: HODGKIN^S DISEASE
     Route: 042
     Dates: start: 20131212, end: 20140127
  5. COMPAZINE (PROCHLORPERAZINE MALATE) [Concomitant]
  6. REGLAN (METOCLOPRAMIDE) [Concomitant]
  7. ATIVAN (LORAZEPAM) [Concomitant]
  8. ZOFRAN (ONDANSETRON HYDROCHLORIDE) [Concomitant]
  9. PEPCID (CALCIUM CARBONATE, FAMOTIDINE, MAGENESIUM HYDROXIDE) [Concomitant]
  10. COLACE [Concomitant]
  11. CALCIUM (CALCIUM GLUBIONATE) [Concomitant]

REACTIONS (15)
  - Hypoaesthesia [None]
  - Paraesthesia [None]
  - Hemiparesis [None]
  - Convulsion [None]
  - Sensory disturbance [None]
  - Coordination abnormal [None]
  - Gait disturbance [None]
  - Speech disorder [None]
  - Asthenia [None]
  - Diplopia [None]
  - VIIth nerve paralysis [None]
  - Tinnitus [None]
  - Somnolence [None]
  - Arteriovenous malformation [None]
  - Blood bicarbonate increased [None]
